FAERS Safety Report 9207151 (Version 1)
Quarter: 2013Q1

REPORT INFORMATION
  Report Type: Spontaneous
  Country: US (occurrence: None)
  Receive Date: 20120802
  Receipt Date: 20120802
  Transmission Date: 20140127
  Serious: Yes (Other)
  Sender: FDA-Public Use
  Company Number: 2011029398

PATIENT
  Sex: Female

DRUGS (1)
  1. CARIMUNE (IMMUNE GLOBULIN INTRAVENOUS (HUMAN) [Suspect]
     Dates: start: 2010, end: 2010

REACTIONS (4)
  - Anaphylactic reaction [None]
  - Dyspnoea [None]
  - Palpitations [None]
  - Flushing [None]
